FAERS Safety Report 19468377 (Version 2)
Quarter: 2021Q3

REPORT INFORMATION
  Report Type: Spontaneous
  Country: US (occurrence: US)
  Receive Date: 20210628
  Receipt Date: 20210803
  Transmission Date: 20211014
  Serious: Yes (Other)
  Sender: FDA-Public Use
  Company Number: US-PFIZER INC-2021722467

PATIENT
  Age: 72 Year
  Sex: Female

DRUGS (2)
  1. XELJANZ XR [Suspect]
     Active Substance: TOFACITINIB CITRATE
     Indication: RHEUMATOID ARTHRITIS
     Dosage: 11 MG, DAILY
     Route: 048
     Dates: start: 20210608
  2. XELJANZ XR [Suspect]
     Active Substance: TOFACITINIB CITRATE
     Dosage: 11 MG (ONCE A DAY)
     Route: 048
     Dates: start: 20210608

REACTIONS (5)
  - Pain in extremity [Unknown]
  - Musculoskeletal stiffness [Unknown]
  - Depressed mood [Unknown]
  - Pain [Unknown]
  - Systemic lupus erythematosus [Unknown]
